FAERS Safety Report 8079754-1 (Version None)
Quarter: 2012Q1

REPORT INFORMATION
  Report Type: 
  Country: None (occurrence: None)
  Receive Date: 20120128
  Receipt Date: 20110730
  Transmission Date: 20120608
  Serious: No
  Sender: FDA-Public Use
  Company Number: US-ABBOTT-11P-163-0842999-00

PATIENT
  Age: 65 Year
  Sex: Female

DRUGS (13)
  1. VASOTEC [Concomitant]
     Indication: SENSATION OF BLOOD FLOW
  2. LASIX [Concomitant]
     Indication: PRODUCT USED FOR UNKNOWN INDICATION
  3. HUMIRA [Suspect]
     Indication: RHEUMATOID ARTHRITIS
     Dates: start: 20110215, end: 20110524
  4. ZOCOR [Concomitant]
     Indication: BLOOD CHOLESTEROL INCREASED
  5. SUPPLEMENTS [Concomitant]
     Indication: PRODUCT USED FOR UNKNOWN INDICATION
     Dosage: QD
  6. HUMIRA [Suspect]
     Dates: start: 20110705
  7. ATENOLOL [Concomitant]
     Indication: BLOOD PRESSURE
  8. METHOTREXATE [Concomitant]
     Indication: RHEUMATOID ARTHRITIS
     Dosage: 8 QW
  9. PREDNISONE TAB [Concomitant]
     Indication: RHEUMATOID ARTHRITIS
  10. FOLIC ACID [Concomitant]
     Indication: SUPPLEMENTATION THERAPY
  11. PLAVIX [Concomitant]
     Indication: MYOCARDIAL INFARCTION
  12. ULTRAM [Concomitant]
     Indication: PAIN
  13. ASPIRIN [Concomitant]
     Indication: PRODUCT USED FOR UNKNOWN INDICATION

REACTIONS (1)
  - HERPES ZOSTER [None]
